FAERS Safety Report 19911933 (Version 1)
Quarter: 2021Q4

REPORT INFORMATION
  Report Type: Spontaneous
  Country: US (occurrence: US)
  Receive Date: 20211002
  Receipt Date: 20211002
  Transmission Date: 20220303
  Serious: Yes (Other)
  Sender: FDA-Public Use
  Company Number: None

PATIENT
  Age: 52 Year
  Sex: Male
  Weight: 135 kg

DRUGS (2)
  1. TINACTIN [Suspect]
     Active Substance: TOLNAFTATE
     Indication: Tinea pedis
     Dosage: ?          QUANTITY:1.5 CANS;
     Route: 061
     Dates: start: 20210301, end: 20210525
  2. AMLODIPINE BESYLATE [Concomitant]
     Active Substance: AMLODIPINE BESYLATE

REACTIONS (2)
  - Hypoaesthesia [None]
  - Recalled product administered [None]

NARRATIVE: CASE EVENT DATE: 20210505
